FAERS Safety Report 25993865 (Version 3)
Quarter: 2025Q4

REPORT INFORMATION
  Report Type: Spontaneous
  Country: US (occurrence: US)
  Receive Date: 20251104
  Receipt Date: 20251126
  Transmission Date: 20260118
  Serious: No
  Sender: SYNDAX
  Company Number: US-SYNDAX PHARMACEUTICALS, INC.-2025US000856

PATIENT
  Sex: Male
  Weight: 70.249 kg

DRUGS (1)
  1. REVUFORJ [Suspect]
     Active Substance: REVUMENIB CITRATE
     Indication: Product used for unknown indication
     Dosage: 160 MILLIGRAM, BID
     Route: 048

REACTIONS (4)
  - Gastrointestinal motility disorder [Unknown]
  - Full blood count decreased [Unknown]
  - Blood pressure abnormal [Unknown]
  - Full blood count abnormal [Unknown]
